FAERS Safety Report 4445377-6 (Version None)
Quarter: 2004Q3

REPORT INFORMATION
  Report Type: 
  Country: None (occurrence: None)
  Receive Date: 20040903
  Receipt Date: 20040825
  Transmission Date: 20050211
  Serious: Yes (Disabling)
  Sender: FDA-Public Use
  Company Number: 04H-078-0271543-00

PATIENT
  Age: 40 Year
  Sex: Male

DRUGS (2)
  1. DOPAMINE HCL [Suspect]
     Dosage: 8 MCG/KG/MIN, INTRAVENOUS
     Route: 042
  2. CHLOROQUINE [Concomitant]

REACTIONS (9)
  - CHILLS [None]
  - DISSEMINATED INTRAVASCULAR COAGULATION [None]
  - DRY GANGRENE [None]
  - MALARIA [None]
  - PAIN [None]
  - PERIPHERAL COLDNESS [None]
  - PERIPHERAL ISCHAEMIA [None]
  - PYREXIA [None]
  - TOE AMPUTATION [None]
